FAERS Safety Report 7486115-2 (Version None)
Quarter: 2011Q2

REPORT INFORMATION
  Report Type: 
  Country: None (occurrence: None)
  Receive Date: 20110517
  Receipt Date: 20110503
  Transmission Date: 20111010
  Serious: Yes (Other)
  Sender: FDA-Public Use
  Company Number: CA-JNJFOC-20110502851

PATIENT
  Sex: Female
  Weight: 60 kg

DRUGS (1)
  1. REMICADE [Suspect]
     Indication: RHEUMATOID ARTHRITIS
     Route: 042
     Dates: start: 20060101

REACTIONS (2)
  - ROAD TRAFFIC ACCIDENT [None]
  - FIBROMYALGIA [None]
